FAERS Safety Report 7258291-8 (Version None)
Quarter: 2011Q1

REPORT INFORMATION
  Report Type: 
  Country: None (occurrence: None)
  Receive Date: 20110129
  Receipt Date: 20100726
  Transmission Date: 20110831
  Serious: No
  Sender: FDA-Public Use
  Company Number: US-ABBOTT-10P-163-0660379-00

PATIENT
  Sex: Female
  Weight: 61.29 kg

DRUGS (4)
  1. HUMIRA [Suspect]
     Indication: PSORIATIC ARTHROPATHY
     Dosage: NOT REPORTED
     Route: 058
     Dates: start: 20030101, end: 20091101
  2. BENICAR [Concomitant]
     Indication: HYPERTENSION
     Dosage: 40/25 MG
  3. LOCOID [Concomitant]
     Indication: PSORIASIS
     Dosage: DAILY AS NEEDED
     Route: 061
  4. DERMA-SMOOTHE/FS [Concomitant]
     Indication: PSORIASIS
     Dosage: DAILY AS NEEDED
     Route: 061

REACTIONS (2)
  - INJECTION SITE INFLAMMATION [None]
  - INJECTION SITE PRURITUS [None]
